FAERS Safety Report 8244658-8 (Version None)
Quarter: 2012Q1

REPORT INFORMATION
  Report Type: 
  Country: None (occurrence: None)
  Receive Date: 20120329
  Receipt Date: 20111214
  Transmission Date: 20120608
  Serious: No
  Sender: FDA-Public Use
  Company Number: US-MYLANLABS-2011S1025847

PATIENT
  Age: 36 Year
  Sex: Male
  Weight: 90.72 kg

DRUGS (5)
  1. DILANTIN [Concomitant]
     Indication: CONVULSION
     Dates: start: 20080101
  2. FENTANYL-100 [Suspect]
     Indication: BACK PAIN
     Dosage: CHANGES Q. 72 HOURS.
     Route: 062
     Dates: start: 20111101
  3. BACLOFEN [Concomitant]
     Indication: MUSCLE SPASMS
     Dates: start: 20080101
  4. TRAMADOL [Concomitant]
     Indication: BACK PAIN
     Dates: start: 20080101
  5. KEPPRA [Concomitant]
     Indication: CONVULSION
     Dosage: USING THE 500MG TABLET
     Dates: start: 20080101

REACTIONS (4)
  - DRUG WITHDRAWAL SYNDROME [None]
  - DRUG INEFFECTIVE [None]
  - APPLICATION SITE ERYTHEMA [None]
  - BACK PAIN [None]
